FAERS Safety Report 6910071-6 (Version None)
Quarter: 2010Q3

REPORT INFORMATION
  Report Type: 
  Country: None (occurrence: None)
  Receive Date: 20100806
  Receipt Date: 20100729
  Transmission Date: 20110219
  Serious: Yes (Hospitalization)
  Sender: FDA-Public Use
  Company Number: US-JNJFOC-20100800225

PATIENT
  Sex: Female
  Weight: 68.04 kg

DRUGS (5)
  1. FENTANYL CITRATE [Suspect]
     Indication: PAIN
     Route: 062
  2. FENTANYL CITRATE [Suspect]
     Route: 062
  3. PHENERGAN [Concomitant]
     Indication: ABDOMINAL DISCOMFORT
     Dosage: EVERY 4-6 HOURS AS NEEDED
     Route: 048
  4. DICYCLOMINE [Concomitant]
     Indication: GASTROINTESTINAL DISORDER
     Route: 048
  5. DARVOCET [Concomitant]
     Indication: BREAKTHROUGH PAIN
     Dosage: 100/650 MG TABLET 2 TWICE A DAY AS NEEDED
     Route: 048

REACTIONS (13)
  - ABDOMINAL PAIN [None]
  - COLITIS [None]
  - DRUG ADMINISTERED AT INAPPROPRIATE SITE [None]
  - DRUG INEFFECTIVE [None]
  - FAECES DISCOLOURED [None]
  - FIBROMYALGIA [None]
  - FRUSTRATION [None]
  - GASTROINTESTINAL DISORDER [None]
  - OSTEOARTHRITIS [None]
  - RHEUMATOID ARTHRITIS [None]
  - SKIN DISCOLOURATION [None]
  - TREATMENT NONCOMPLIANCE [None]
  - WRONG TECHNIQUE IN DRUG USAGE PROCESS [None]
